FAERS Safety Report 18378827 (Version 1)
Quarter: 2020Q4

REPORT INFORMATION
  Report Type: Report from Study
  Country: None (occurrence: US)
  Receive Date: 20201014
  Receipt Date: 20201014
  Transmission Date: 20210114
  Serious: Yes (Other)
  Sender: FDA-Public Use
  Company Number: US-ABBVIE-20K-163-3603257-00

PATIENT
  Sex: Female

DRUGS (1)
  1. HUMIRA [Suspect]
     Active Substance: ADALIMUMAB
     Indication: PSORIATIC ARTHROPATHY
     Dosage: CF
     Route: 058
     Dates: start: 202001, end: 2020

REACTIONS (13)
  - Arthralgia [Recovering/Resolving]
  - Loss of consciousness [Unknown]
  - Pain of skin [Recovering/Resolving]
  - Wrist fracture [Unknown]
  - Sinusitis [Recovering/Resolving]
  - Shoulder operation [Recovering/Resolving]
  - Knee operation [Recovering/Resolving]
  - Ear infection [Recovering/Resolving]
  - Migraine [Unknown]
  - Amnesia [Unknown]
  - Facial pain [Unknown]
  - Eye pain [Unknown]
  - Ear pain [Unknown]

NARRATIVE: CASE EVENT DATE: 2020
